FAERS Safety Report 7378560-0 (Version None)
Quarter: 2011Q1

REPORT INFORMATION
  Report Type: 
  Country: None (occurrence: None)
  Receive Date: 20110328
  Receipt Date: 20110323
  Transmission Date: 20110831
  Serious: Yes (Other)
  Sender: FDA-Public Use
  Company Number: US-PFIZER INC-2011065344

PATIENT
  Sex: Male
  Weight: 136 kg

DRUGS (1)
  1. VIAGRA [Suspect]
     Dosage: 500 MG, UNK
     Route: 048
     Dates: start: 20110301

REACTIONS (2)
  - PENIS DISORDER [None]
  - SCROTAL MASS [None]
